FAERS Safety Report 5878604-9 (Version None)
Quarter: 2008Q3

REPORT INFORMATION
  Report Type: 
  Country: None (occurrence: None)
  Receive Date: 20080909
  Receipt Date: 20080902
  Transmission Date: 20090109
  Serious: Yes (Life-Threatening, Other)
  Sender: FDA-Public Use
  Company Number: 2008SP017907

PATIENT
  Age: 64 Year
  Sex: Female
  Weight: 84.9 kg

DRUGS (5)
  1. TEMOZOLOMIDE [Suspect]
     Indication: GLIOBLASTOMA MULTIFORME
     Dosage: 145 MG; PO
     Route: 048
     Dates: start: 20080409, end: 20080507
  2. CO TRIMOXAZOLE [Concomitant]
  3. METOCLOPRAMIDE [Concomitant]
  4. ONDANSETRON [Concomitant]
  5. PHENYTOIN [Concomitant]

REACTIONS (2)
  - BONE MARROW FAILURE [None]
  - SEPSIS [None]
